FAERS Safety Report 14481344 (Version 1)
Quarter: 2018Q1

REPORT INFORMATION
  Report Type: Spontaneous
  Country: US (occurrence: US)
  Receive Date: 20180202
  Receipt Date: 20180202
  Transmission Date: 20180509
  Serious: Yes (Other)
  Sender: FDA-Public Use
  Company Number: US-BEH-2018087271

PATIENT
  Sex: Female
  Weight: 49.89 kg

DRUGS (28)
  1. DIPHENHYDRAMINE. [Concomitant]
     Active Substance: DIPHENHYDRAMINE
  2. LEVOTHYROXINE. [Concomitant]
     Active Substance: LEVOTHYROXINE
  3. ALEVE [Concomitant]
     Active Substance: NAPROXEN SODIUM
  4. BICILLIN                           /00000904/ [Concomitant]
  5. MIRALAX [Concomitant]
     Active Substance: POLYETHYLENE GLYCOL 3350
  6. HEPARIN [Concomitant]
     Active Substance: HEPARIN SODIUM
  7. SENNA                              /00142201/ [Concomitant]
     Active Substance: SENNA LEAF
  8. PRIVIGEN [Suspect]
     Active Substance: HUMAN IMMUNOGLOBULIN G
     Dosage: UNK
     Route: 042
  9. PRIVIGEN [Suspect]
     Active Substance: HUMAN IMMUNOGLOBULIN G
     Dosage: UNK
     Route: 042
  10. PROBIOTIC                          /06395501/ [Concomitant]
     Active Substance: BIFIDOBACTERIUM ANIMALIS LACTIS
  11. SUDAFED PE CONGESTION [Concomitant]
     Active Substance: PHENYLEPHRINE HYDROCHLORIDE
  12. SODIUM CHLORIDE. [Concomitant]
     Active Substance: SODIUM CHLORIDE
  13. EPINEPHRINE. [Concomitant]
     Active Substance: EPINEPHRINE
  14. LYRICA [Concomitant]
     Active Substance: PREGABALIN
  15. PRIVIGEN [Suspect]
     Active Substance: HUMAN IMMUNOGLOBULIN G
     Indication: IMMUNODEFICIENCY COMMON VARIABLE
     Dosage: 25 G, QOW
     Route: 042
     Dates: start: 20170629
  16. ACETAMINOPHEN. [Concomitant]
     Active Substance: ACETAMINOPHEN
  17. SINEMET [Concomitant]
     Active Substance: CARBIDOPA\LEVODOPA
  18. BACLOFEN. [Concomitant]
     Active Substance: BACLOFEN
  19. LORAZEPAM. [Concomitant]
     Active Substance: LORAZEPAM
  20. COENZYME Q10 [Concomitant]
     Active Substance: UBIDECARENONE
  21. FISH OIL [Concomitant]
     Active Substance: FISH OIL
  22. CYCLOBENZAPRINE. [Concomitant]
     Active Substance: CYCLOBENZAPRINE
  23. ASPIRIN. [Concomitant]
     Active Substance: ASPIRIN
  24. MAGNESIUM [Concomitant]
     Active Substance: MAGNESIUM
  25. COLACE [Concomitant]
     Active Substance: DOCUSATE SODIUM
  26. MIRAPEX [Concomitant]
     Active Substance: PRAMIPEXOLE DIHYDROCHLORIDE
  27. CALCIUM [Concomitant]
     Active Substance: CALCIUM
  28. TIROSINT [Concomitant]
     Active Substance: LEVOTHYROXINE SODIUM

REACTIONS (3)
  - Nervous system disorder [Unknown]
  - Parkinson^s disease [Unknown]
  - Tremor [Unknown]
